FAERS Safety Report 21813385 (Version 1)
Quarter: 2023Q1

REPORT INFORMATION
  Report Type: Spontaneous
  Country: US (occurrence: US)
  Receive Date: 20230103
  Receipt Date: 20230103
  Transmission Date: 20230418
  Serious: No
  Sender: FDA-Public Use
  Company Number: US-JNJFOC-20221229931

PATIENT
  Age: 71 Year
  Sex: Female

DRUGS (6)
  1. TREMFYA [Suspect]
     Active Substance: GUSELKUMAB
     Indication: Psoriasis
     Route: 058
     Dates: start: 20221209
  2. GABAPENTIN [Concomitant]
     Active Substance: GABAPENTIN
  3. ALLOPURINOL [Concomitant]
     Active Substance: ALLOPURINOL
  4. SIMVASTATIN [Concomitant]
     Active Substance: SIMVASTATIN
  5. POTASSIUM [Concomitant]
     Active Substance: POTASSIUM
  6. TELMISARTAN [Concomitant]
     Active Substance: TELMISARTAN

REACTIONS (3)
  - Needle issue [Unknown]
  - Accidental exposure to product [Unknown]
  - Product dose omission issue [Unknown]

NARRATIVE: CASE EVENT DATE: 20221212
